FAERS Safety Report 5951685-X (Version None)
Quarter: 2008Q4

REPORT INFORMATION
  Report Type: 
  Country: None (occurrence: None)
  Receive Date: 20081022
  Receipt Date: 20080821
  Transmission Date: 20090506
  Serious: No
  Sender: FDA-Public Use
  Company Number: ALL1-2008-02369

PATIENT
  Age: 7 Year
  Sex: Female
  Weight: 24.9 kg

DRUGS (2)
  1. VYVANSE [Suspect]
     Indication: ATTENTION DEFICIT/HYPERACTIVITY DISORDER
     Dosage: 30 MG, 1X/DAY:QD, ORAL
     Route: 048
     Dates: start: 20080731
  2. STRATTERA (ATOMOXETINE HDYROCHLORIDE) TABLET [Concomitant]

REACTIONS (1)
  - DRUG EFFECT DECREASED [None]
